FAERS Safety Report 8414840-5 (Version None)
Quarter: 2012Q2

REPORT INFORMATION
  Report Type: 
  Country: None (occurrence: None)
  Receive Date: 20120606
  Receipt Date: 20120529
  Transmission Date: 20120825
  Serious: No
  Sender: FDA-Public Use
  Company Number: US-BIOGENIDEC-2012BI018851

PATIENT
  Sex: Female

DRUGS (2)
  1. AVONEX [Suspect]
     Indication: MULTIPLE SCLEROSIS
     Route: 030
     Dates: start: 20090518, end: 20100215
  2. AVONEX [Suspect]
     Route: 030
     Dates: start: 20120205, end: 20120520

REACTIONS (2)
  - HAEMATEMESIS [None]
  - DRUG INEFFECTIVE [None]
